FAERS Safety Report 20779556 (Version 3)
Quarter: 2022Q3

REPORT INFORMATION
  Report Type: Report from Study
  Country: IT (occurrence: IT)
  Receive Date: 20220503
  Receipt Date: 20220928
  Transmission Date: 20221027
  Serious: Yes (Other)
  Sender: FDA-Public Use
  Company Number: IT-002147023-NVSC2021IT144704

PATIENT

DRUGS (11)
  1. RUXOLITINIB [Suspect]
     Active Substance: RUXOLITINIB
     Indication: Myelofibrosis
     Dosage: 30 DAILY DOSE
     Route: 065
     Dates: start: 20180130, end: 20180220
  2. RUXOLITINIB [Suspect]
     Active Substance: RUXOLITINIB
     Dosage: 20 DAILY DOSE
     Route: 065
     Dates: start: 20180221, end: 20180309
  3. RUXOLITINIB [Suspect]
     Active Substance: RUXOLITINIB
     Dosage: 5 DAILY DOSE
     Route: 065
     Dates: start: 20180324, end: 20180907
  4. RUXOLITINIB [Suspect]
     Active Substance: RUXOLITINIB
     Dosage: 8 DAILY DOSE
     Route: 065
     Dates: start: 20180908, end: 20200221
  5. RUXOLITINIB [Suspect]
     Active Substance: RUXOLITINIB
     Dosage: 5 DAILY DOSE
     Route: 065
     Dates: start: 20200222, end: 20200226
  6. RUXOLITINIB [Suspect]
     Active Substance: RUXOLITINIB
     Dosage: 8 DAILY DOSE
     Route: 065
     Dates: start: 20200518, end: 20210414
  7. RUXOLITINIB [Suspect]
     Active Substance: RUXOLITINIB
     Dosage: 5 DAILY DOSE
     Route: 065
     Dates: start: 20210415, end: 20210512
  8. RUXOLITINIB [Suspect]
     Active Substance: RUXOLITINIB
     Dosage: 8 DAILY DOSE
     Route: 065
     Dates: start: 20210513, end: 20210616
  9. RUXOLITINIB [Suspect]
     Active Substance: RUXOLITINIB
     Dosage: 15 DAILY DOSE
     Route: 065
     Dates: start: 20210616, end: 20211013
  10. RUXOLITINIB [Suspect]
     Active Substance: RUXOLITINIB
     Dosage: 10 DAILY DOSE
     Route: 065
     Dates: start: 20211014
  11. ACETAMINOPHEN [Concomitant]
     Active Substance: ACETAMINOPHEN
     Indication: Product used for unknown indication
     Dosage: 3-4 QS, PER DAY AS NEEDED
     Route: 065
     Dates: end: 20210310

REACTIONS (7)
  - Blood cholesterol increased [Unknown]
  - Hepatic steatosis [Unknown]
  - Hyperkalaemia [Recovered/Resolved]
  - Aspartate aminotransferase increased [Not Recovered/Not Resolved]
  - Alanine aminotransferase increased [Not Recovered/Not Resolved]
  - Gamma-glutamyltransferase increased [Not Recovered/Not Resolved]
  - Drug abuse [Recovered/Resolved]

NARRATIVE: CASE EVENT DATE: 20210310
